FAERS Safety Report 9528594 (Version 1)
Quarter: 2013Q1

REPORT INFORMATION
  Report Type: Spontaneous
  Country: US (occurrence: None)
  Receive Date: 20130327
  Receipt Date: 20130327
  Transmission Date: 20140127
  Serious: Yes (Hospitalization)
  Sender: FDA-Public Use
  Company Number: 2012-0682

PATIENT
  Age: 34 Year
  Sex: Female
  Weight: 73.48 kg

DRUGS (4)
  1. SOMATULINE DEPOT [Suspect]
     Indication: ACROMEGALY
     Dosage: 90 MG (90 MG, 1 IN 28 D), SUBCUTANEOUS
     Route: 058
     Dates: start: 20120201, end: 201202
  2. UNSPECIFIED (MULTIVITIAMIN (MULTIVITAMIN/00831701/) [Concomitant]
  3. CHONDROITIN-GLUCOSAMINE (GLUCOSAMINE W/CHONDROITIN) [Concomitant]
  4. MUCINEX (GUAIFENESIN) [Concomitant]

REACTIONS (10)
  - Tumour excision [None]
  - Tendon disorder [None]
  - Joint stiffness [None]
  - Myalgia [None]
  - Lymphadenopathy [None]
  - Diarrhoea [None]
  - Vomiting [None]
  - Headache [None]
  - Fatigue [None]
  - Abdominal pain upper [None]
